FAERS Safety Report 12106100 (Version 1)
Quarter: 2016Q1

REPORT INFORMATION
  Report Type: Report from Study
  Country: US (occurrence: US)
  Receive Date: 20160223
  Receipt Date: 20160223
  Transmission Date: 20160526
  Serious: Yes (Hospitalization, Other)
  Sender: FDA-Public Use
  Company Number: US-EXELIXIS-XL18416006033

PATIENT
  Age: 65 Year
  Sex: Female
  Weight: 94.8 kg

DRUGS (17)
  1. CHOLECALCIFEROL [Concomitant]
     Active Substance: CHOLECALCIFEROL
  2. LEVOXYL [Concomitant]
     Active Substance: LEVOTHYROXINE SODIUM
  3. DOCUSATE SODIUM. [Concomitant]
     Active Substance: DOCUSATE SODIUM
  4. METFORMIN [Concomitant]
     Active Substance: METFORMIN HYDROCHLORIDE
  5. JANUVIA [Concomitant]
     Active Substance: SITAGLIPTIN PHOSPHATE
  6. L-LYSINE [Concomitant]
     Active Substance: LYSINE
  7. FLAXSEED [Concomitant]
     Active Substance: FLAX SEED
  8. ESOMEPRAZOLE [Concomitant]
     Active Substance: ESOMEPRAZOLE
  9. SIMVASTATIN. [Concomitant]
     Active Substance: SIMVASTATIN
  10. CALCIUM CARBONATE AND VITAMIN D [Concomitant]
  11. MAGNESIUM OXIDE. [Concomitant]
     Active Substance: MAGNESIUM OXIDE
  12. MULTIVITAMIN [Concomitant]
     Active Substance: VITAMINS
  13. NYSTATIN. [Concomitant]
     Active Substance: NYSTATIN
  14. TRIAMTERENE AND HYDROCHLOROTHIAZIDE [Concomitant]
     Active Substance: HYDROCHLOROTHIAZIDE\TRIAMTERENE
  15. ZOMETA [Concomitant]
     Active Substance: ZOLEDRONIC ACID
  16. XL184 [Suspect]
     Active Substance: CABOZANTINIB
     Indication: THYROID CANCER
     Dosage: 20 MG, QD
     Route: 048
     Dates: start: 20150611, end: 20160118
  17. IBUPROFEN. [Concomitant]
     Active Substance: IBUPROFEN

REACTIONS (2)
  - Anal fistula [Unknown]
  - Rectal abscess [Unknown]

NARRATIVE: CASE EVENT DATE: 201602
